FAERS Safety Report 13930152 (Version 1)
Quarter: 2017Q3

REPORT INFORMATION
  Report Type: Spontaneous
  Country: AT (occurrence: AT)
  Receive Date: 20170901
  Receipt Date: 20170901
  Transmission Date: 20171127
  Serious: Yes (Death, Life-Threatening, Hospitalization)
  Sender: FDA-Public Use
  Company Number: AT-ASTRAZENECA-2017SE89492

PATIENT
  Age: 73 Year
  Sex: Male

DRUGS (23)
  1. DANCOR [Concomitant]
     Active Substance: NICORANDIL
     Dosage: 1-0-1
     Dates: start: 201507
  2. AQUAPHORIL [Concomitant]
     Active Substance: XIPAMIDE
     Dosage: 0.5-0-0
  3. AZILECT [Suspect]
     Active Substance: RASAGILINE MESYLATE
     Dosage: 1-0-0
     Route: 065
     Dates: start: 20160125, end: 20160130
  4. LOVENOX [Concomitant]
     Active Substance: ENOXAPARIN SODIUM
     Dosage: 1 TIME DAILY
     Dates: start: 20160125
  5. LASIX [Concomitant]
     Active Substance: FUROSEMIDE
     Dates: start: 20160129
  6. THROMBO ASS [Concomitant]
     Active Substance: ASPIRIN
     Dosage: 0-1-0
     Dates: start: 20160129
  7. SEDACORON [Concomitant]
     Active Substance: AMIODARONE HYDROCHLORIDE
     Dosage: 0.5-0-0
     Dates: start: 201507
  8. TORASEMIDE [Concomitant]
     Active Substance: TORSEMIDE
     Dosage: 1-0-0
  9. OPTINEM [Concomitant]
     Active Substance: MEROPENEM
     Dates: start: 20160129, end: 20160210
  10. CIPRALEX [Suspect]
     Active Substance: ESCITALOPRAM OXALATE
     Route: 065
     Dates: start: 201507
  11. MADOPAR [Suspect]
     Active Substance: BENSERAZIDE HYDROCHLORIDE\LEVODOPA
     Route: 065
     Dates: start: 201507, end: 201508
  12. ISOPHANE INSULIN [Concomitant]
     Active Substance: INSULIN NOS
     Dosage: 610-0-0
  13. SEROQUEL [Suspect]
     Active Substance: QUETIAPINE FUMARATE
     Dosage: 25.0MG UNKNOWN
     Route: 048
     Dates: start: 20160125
  14. CIPRALEX [Suspect]
     Active Substance: ESCITALOPRAM OXALATE
     Dosage: 1-0-0
     Route: 065
     Dates: start: 20160212
  15. CIPRALEX [Suspect]
     Active Substance: ESCITALOPRAM OXALATE
     Dosage: 2-0-0
     Route: 065
     Dates: start: 20160125, end: 20160130
  16. TRITTICO [Suspect]
     Active Substance: TRAZODONE HYDROCHLORIDE
     Dosage: 0-0-0-0.5
     Route: 065
     Dates: start: 20160125, end: 20160130
  17. MADOPAR [Suspect]
     Active Substance: BENSERAZIDE HYDROCHLORIDE\LEVODOPA
     Dosage: 50 MG/12,5 MG, 1-1-1
     Route: 065
     Dates: start: 20160125
  18. ELOMEL [Concomitant]
     Dosage: 1 TIME DAILY
     Dates: start: 20160129, end: 20160130
  19. SPIROBENE [Concomitant]
     Active Substance: SPIRONOLACTONE
     Dosage: 0-0.5-0
     Dates: start: 20160129
  20. PANTOLOC [Concomitant]
     Active Substance: PANTOPRAZOLE SODIUM
     Dosage: 2-0-0
     Dates: start: 201507
  21. STALEVO [Suspect]
     Active Substance: CARBIDOPA\ENTACAPONE\LEVODOPA
     Dosage: 100 MG/25 MG/200 MG, 1-0-0
     Route: 065
     Dates: start: 20160125, end: 20160128
  22. STALEVO [Suspect]
     Active Substance: CARBIDOPA\ENTACAPONE\LEVODOPA
     Dosage: 100 MG/25 MG/200 MG, 1-1-0
     Route: 065
     Dates: start: 20160212
  23. CEFTRIAXONE SODIUM. [Concomitant]
     Active Substance: CEFTRIAXONE SODIUM
     Dosage: 2 G IN 200 ML, ONCE DAILY

REACTIONS (11)
  - Coronary artery disease [Fatal]
  - Dehydration [Unknown]
  - Atrial fibrillation [Fatal]
  - Renal impairment [Fatal]
  - Condition aggravated [Fatal]
  - Cardiac failure [Fatal]
  - Pneumonia [Unknown]
  - Off label use [Unknown]
  - Weight decreased [Unknown]
  - Oedema peripheral [Unknown]
  - Fatigue [Unknown]

NARRATIVE: CASE EVENT DATE: 20160125
